FAERS Safety Report 10493731 (Version 6)
Quarter: 2015Q2

REPORT INFORMATION
  Report Type: Report from Study
  Country: US (occurrence: US)
  Receive Date: 20141002
  Receipt Date: 20150617
  Transmission Date: 20150821
  Serious: Yes (Hospitalization, Other)
  Sender: FDA-Public Use
  Company Number: US-GILEAD-2014-0116633

PATIENT
  Age: 69 Year
  Sex: Male
  Weight: 83.9 kg

DRUGS (43)
  1. BENDAMUSTINE [Suspect]
     Active Substance: BENDAMUSTINE
     Dosage: 181 MG, CYCLICAL
     Route: 042
     Dates: start: 20140828, end: 20140828
  2. BENDAMUSTINE [Suspect]
     Active Substance: BENDAMUSTINE
     Dosage: 181 MG, CYCLICAL
     Route: 042
     Dates: start: 20140923, end: 20140923
  3. BENDAMUSTINE [Suspect]
     Active Substance: BENDAMUSTINE
     Dosage: 181 MG, CYCLICAL
     Route: 042
     Dates: start: 20140924, end: 20140924
  4. BENDAMUSTINE [Suspect]
     Active Substance: BENDAMUSTINE
     Dosage: 121 MG, CYCLICAL
     Route: 042
     Dates: start: 20141103, end: 20141103
  5. BENDAMUSTINE [Suspect]
     Active Substance: BENDAMUSTINE
     Dosage: 121 MG, CYCLICAL
     Route: 042
     Dates: start: 20141223, end: 20141223
  6. RITUXIMAB [Suspect]
     Active Substance: RITUXIMAB
     Dosage: 1005 MG, CYCLICAL
     Route: 042
     Dates: start: 20141124, end: 20141124
  7. RITUXIMAB [Suspect]
     Active Substance: RITUXIMAB
     Dosage: 1005 MG, CYCLICAL
     Route: 042
     Dates: start: 20141222, end: 20141222
  8. INOSITOL [Concomitant]
     Active Substance: INOSITOL
     Indication: SUPPLEMENTATION THERAPY
     Route: 048
     Dates: start: 2011
  9. INDAPAMIDE. [Concomitant]
     Active Substance: INDAPAMIDE
     Indication: HYPERTENSION
     Route: 048
     Dates: start: 2008
  10. MULTIVITAMIN                       /00097801/ [Concomitant]
     Active Substance: VITAMINS
     Indication: SUPPLEMENTATION THERAPY
     Route: 048
     Dates: start: 2009
  11. BENDAMUSTINE [Suspect]
     Active Substance: BENDAMUSTINE
     Dosage: 121 MG, CYCLICAL
     Route: 042
     Dates: start: 20141125, end: 20141125
  12. BENDAMUSTINE [Suspect]
     Active Substance: BENDAMUSTINE
     Dosage: 121 MG, CYCLICAL
     Route: 042
     Dates: start: 20150121, end: 20150121
  13. BENDAMUSTINE [Suspect]
     Active Substance: BENDAMUSTINE
     Dosage: UNK
     Route: 042
  14. BACTRIM [Concomitant]
     Active Substance: SULFAMETHOXAZOLE\TRIMETHOPRIM
     Indication: ANTIFUNGAL PROPHYLAXIS
     Dosage: UNK
     Route: 048
     Dates: start: 20140827
  15. FLAXSEED [Concomitant]
     Active Substance: FLAX SEED
     Indication: SUPPLEMENTATION THERAPY
     Route: 048
     Dates: start: 2013
  16. OLIVE LEAVES EXTRACT [Concomitant]
     Indication: SUPPLEMENTATION THERAPY
     Route: 048
     Dates: start: 201408
  17. BENDAMUSTINE [Suspect]
     Active Substance: BENDAMUSTINE
     Dosage: 121 MG, CYCLICAL
     Route: 042
     Dates: start: 20150120, end: 20150120
  18. ALLOPURINOL. [Concomitant]
     Active Substance: ALLOPURINOL
     Dosage: UNK
     Route: 048
  19. ALLOPURINOL. [Concomitant]
     Active Substance: ALLOPURINOL
     Route: 048
     Dates: start: 20140913
  20. DIPHENHYDRAMINE                    /00000402/ [Concomitant]
     Active Substance: DIPHENHYDRAMINE
     Indication: PREMEDICATION
     Dosage: UNK
     Route: 042
     Dates: start: 20140827
  21. BENDAMUSTINE [Suspect]
     Active Substance: BENDAMUSTINE
     Dosage: 121 MG, CYCLICAL
     Route: 042
     Dates: start: 20141104, end: 20141104
  22. RITUXIMAB [Suspect]
     Active Substance: RITUXIMAB
     Dosage: 1005 MG, CYCLICAL
     Route: 042
     Dates: start: 20141103, end: 20141103
  23. NEXIUM [Concomitant]
     Active Substance: ESOMEPRAZOLE MAGNESIUM
     Indication: GASTROOESOPHAGEAL REFLUX DISEASE
     Route: 048
     Dates: start: 2004
  24. IDELALISIB [Suspect]
     Active Substance: IDELALISIB
     Dosage: 100 MG, BID
     Route: 048
     Dates: start: 20141030, end: 20150511
  25. BENDAMUSTINE [Suspect]
     Active Substance: BENDAMUSTINE
     Indication: CHRONIC LYMPHOCYTIC LEUKAEMIA
     Dosage: 181 MG, CYCLICAL
     Route: 042
     Dates: start: 20140827, end: 20140827
  26. BENDAMUSTINE [Suspect]
     Active Substance: BENDAMUSTINE
     Dosage: 121 MG, CYCLICAL
     Route: 042
     Dates: start: 20141124, end: 20141124
  27. THORAZINE [Concomitant]
     Active Substance: CHLORPROMAZINE
     Indication: HICCUPS
     Dosage: UNK
     Route: 048
     Dates: start: 20140828, end: 20141222
  28. DEXAMETHASONE. [Concomitant]
     Active Substance: DEXAMETHASONE
     Dosage: UNK
     Route: 042
     Dates: start: 20140827
  29. ZANTAC [Concomitant]
     Active Substance: RANITIDINE HYDROCHLORIDE
     Route: 048
     Dates: start: 20140827
  30. BENDAMUSTINE [Suspect]
     Active Substance: BENDAMUSTINE
     Dosage: UNK
     Route: 042
  31. PROBIOTICS NOS [Concomitant]
     Active Substance: PROBIOTICS NOS
     Indication: SUPPLEMENTATION THERAPY
     Route: 048
     Dates: start: 201407
  32. ACETAMINOPHEN. [Concomitant]
     Active Substance: ACETAMINOPHEN
     Route: 048
     Dates: start: 20140827
  33. BENDAMUSTINE [Suspect]
     Active Substance: BENDAMUSTINE
     Dosage: 121 MG, CYCLICAL
     Route: 042
     Dates: start: 20141222, end: 20141222
  34. RITUXIMAB [Suspect]
     Active Substance: RITUXIMAB
     Dosage: 1005 MG, CYCLICAL
     Route: 042
     Dates: start: 20150120, end: 20150120
  35. AXIRON [Concomitant]
     Active Substance: TESTOSTERONE
     Indication: BLOOD TESTOSTERONE DECREASED
     Route: 061
     Dates: start: 2010
  36. PALONOSETRON HCL [Concomitant]
     Active Substance: PALONOSETRON HYDROCHLORIDE
     Dosage: UNK
     Route: 042
     Dates: start: 20140827
  37. IDELALISIB [Suspect]
     Active Substance: IDELALISIB
     Indication: CHRONIC LYMPHOCYTIC LEUKAEMIA
     Dosage: 150 MG, BID
     Route: 048
     Dates: start: 20140827, end: 20140924
  38. RITUXIMAB [Suspect]
     Active Substance: RITUXIMAB
     Indication: CHRONIC LYMPHOCYTIC LEUKAEMIA
     Dosage: 754 MG, CYCLICAL
     Route: 042
     Dates: start: 20140827, end: 20140827
  39. RITUXIMAB [Suspect]
     Active Substance: RITUXIMAB
     Dosage: 1005 MG, CYCLICAL
     Route: 042
     Dates: start: 20140923, end: 20140923
  40. RITUXIMAB [Suspect]
     Active Substance: RITUXIMAB
     Dosage: UNK
     Route: 042
  41. CARAFATE [Concomitant]
     Active Substance: SUCRALFATE
     Dosage: UNK
     Route: 065
  42. ZOFRAN                             /00955301/ [Concomitant]
     Active Substance: ONDANSETRON HYDROCHLORIDE
     Dosage: UNK
     Route: 065
  43. BYSTOLIC [Concomitant]
     Active Substance: NEBIVOLOL HYDROCHLORIDE
     Indication: HYPERTENSION
     Route: 048
     Dates: start: 2008

REACTIONS (2)
  - Small intestinal obstruction [Recovered/Resolved]
  - Mucosal inflammation [Unknown]

NARRATIVE: CASE EVENT DATE: 20140924
